FAERS Safety Report 5876762-3 (Version None)
Quarter: 2008Q3

REPORT INFORMATION
  Report Type: 
  Country: None (occurrence: None)
  Receive Date: 20080909
  Receipt Date: 20080909
  Transmission Date: 20090109
  Serious: Yes (Life-Threatening)
  Sender: FDA-Public Use
  Company Number: None

PATIENT
  Age: 53 Year
  Sex: Female
  Weight: 74.8435 kg

DRUGS (1)
  1. CIPRO [Suspect]
     Indication: KIDNEY INFECTION
     Dosage: 1 PILL EVERY 8 HOURS PO
     Route: 048
     Dates: start: 20080105, end: 20080110

REACTIONS (8)
  - CHROMATOPSIA [None]
  - DRUG TOXICITY [None]
  - HALLUCINATION [None]
  - INCOHERENT [None]
  - INSOMNIA [None]
  - MUSCLE TWITCHING [None]
  - RASH [None]
  - SPEECH DISORDER [None]
